FAERS Safety Report 22144430 (Version 1)
Quarter: 2023Q1

REPORT INFORMATION
  Report Type: Spontaneous
  Country: US (occurrence: US)
  Receive Date: 20230328
  Receipt Date: 20230328
  Transmission Date: 20230418
  Serious: Yes (Death, Other)
  Sender: FDA-Public Use
  Company Number: US-AMGEN-USASP2023052182

PATIENT

DRUGS (4)
  1. BLINCYTO [Suspect]
     Active Substance: BLINATUMOMAB
     Indication: Acute lymphocytic leukaemia
     Dosage: UNK
     Route: 065
  2. BLINCYTO [Suspect]
     Active Substance: BLINATUMOMAB
     Indication: Philadelphia positive acute lymphocytic leukaemia
  3. BLINCYTO [Suspect]
     Active Substance: BLINATUMOMAB
     Indication: Precursor T-lymphoblastic leukaemia acute
  4. RITUXIMAB [Suspect]
     Active Substance: RITUXIMAB
     Indication: Product used for unknown indication
     Dosage: UNK
     Route: 065

REACTIONS (10)
  - Death [Fatal]
  - Haemorrhage [Fatal]
  - Second primary malignancy [Fatal]
  - Infection [Fatal]
  - Acute graft versus host disease [Unknown]
  - Chronic graft versus host disease [Unknown]
  - Acute lymphocytic leukaemia recurrent [Unknown]
  - Bone marrow leukaemic cell infiltration [Unknown]
  - Central nervous system leukaemia [Unknown]
  - Transplant failure [Unknown]
